FAERS Safety Report 5137292-X (Version None)
Quarter: 2006Q4

REPORT INFORMATION
  Report Type: 
  Country: None (occurrence: None)
  Receive Date: 20061030
  Receipt Date: 20051005
  Transmission Date: 20070319
  Serious: Yes (Other)
  Sender: FDA-Public Use
  Company Number: US-GLAXOSMITHKLINE-A0577203A

PATIENT
  Age: 58 Year
  Sex: Female

DRUGS (5)
  1. ADVAIR HFA [Suspect]
     Indication: CHRONIC OBSTRUCTIVE PULMONARY DISEASE
     Dosage: 1PUFF TWICE PER DAY
     Route: 055
  2. TRAZODONE HCL [Concomitant]
  3. TRIAMTERENE [Concomitant]
  4. COMBIVENT [Concomitant]
  5. PREMARIN [Concomitant]

REACTIONS (1)
  - CATARACT [None]
